FAERS Safety Report 8660067 (Version 3)
Quarter: 2014Q1

REPORT INFORMATION
  Report Type: Spontaneous
  Country: US (occurrence: US)
  Receive Date: 20120711
  Receipt Date: 20140110
  Transmission Date: 20141002
  Serious: Yes (Death, Hospitalization, Other)
  Sender: FDA-Public Use
  Company Number: US-PFIZER INC-2012163964

PATIENT
  Age: 44 Year
  Sex: Male

DRUGS (2)
  1. CHANTIX [Suspect]
     Indication: SMOKING CESSATION THERAPY
     Dosage: 0.5MG AND 1MG, UNK
     Dates: start: 20110106
  2. CHANTIX [Suspect]
     Dosage: UNK
     Dates: start: 20110701, end: 20110809

REACTIONS (1)
  - Completed suicide [Fatal]
